FAERS Safety Report 5417352-6 (Version None)
Quarter: 2007Q3

REPORT INFORMATION
  Report Type: 
  Country: None (occurrence: None)
  Receive Date: 20070718
  Receipt Date: 20070403
  Transmission Date: 20080115
  Serious: Yes (Other)
  Sender: FDA-Public Use
  Company Number: 2007027118

PATIENT
  Age: 73 Year
  Sex: Female
  Weight: 68 kg

DRUGS (9)
  1. CELEBREX [Suspect]
     Indication: ARTHRITIS
     Dosage: 200 MG (200 MG,1 IN 1 D)
  2. CELEBREX [Suspect]
     Indication: PAIN
     Dosage: 200 MG (200 MG,1 IN 1 D)
  3. CLOPIDOGREL [Suspect]
  4. PLAVIX [Concomitant]
  5. ATENOLOL [Concomitant]
  6. ISOSORBIDE (ISOSORBIDE) [Concomitant]
  7. SYNTHROID [Concomitant]
  8. ZELNORM [Concomitant]
  9. ACETYLSALICYLIC ACID SRT [Concomitant]

REACTIONS (1)
  - URTICARIA [None]
